FAERS Safety Report 7277907-3 (Version None)
Quarter: 2011Q1

REPORT INFORMATION
  Report Type: 
  Country: None (occurrence: None)
  Receive Date: 20110207
  Receipt Date: 20110201
  Transmission Date: 20110831
  Serious: Yes (Death)
  Sender: FDA-Public Use
  Company Number: SE-ROCHE-701462

PATIENT
  Sex: Female
  Weight: 66.8 kg

DRUGS (5)
  1. CISPLATIN [Suspect]
     Indication: NON-SMALL CELL LUNG CANCER
     Dosage: FORM: INFUSION, LAST DOSE RECEIVED ON 02 FEBRUARY 2010 PRIOR TO SAE.
     Route: 042
     Dates: start: 20091202
  2. PEMETREXED [Suspect]
     Indication: NON-SMALL CELL LUNG CANCER
     Dosage: FORM: INFUSION, LAST DOSE RECEIVED ON 02 FEBRUARY 2010 PRIOR TO SAE. DRUG REPORTED AS PREMETREXED.
     Route: 042
     Dates: start: 20091202
  3. BEVACIZUMAB [Suspect]
     Indication: NON-SMALL CELL LUNG CANCER
     Dosage: LAST DOSE RECEIVED ON 15 APRIL 2010, FORM: INFUSION.
     Route: 042
     Dates: start: 20091202
  4. BISOPROLOL [Concomitant]
     Dates: start: 20100303
  5. TRIMETHOPRIM [Concomitant]
     Dates: start: 20100421

REACTIONS (4)
  - NERVOUS SYSTEM DISORDER [None]
  - LOSS OF CONSCIOUSNESS [None]
  - HAEMOPTYSIS [None]
  - HAEMORRHAGE [None]
